FAERS Safety Report 13160192 (Version 2)
Quarter: 2017Q1

REPORT INFORMATION
  Report Type: Report from Study
  Country: RU (occurrence: RU)
  Receive Date: 20170127
  Receipt Date: 20170310
  Transmission Date: 20170428
  Serious: No
  Sender: FDA-Public Use
  Company Number: RU-ALEXION PHARMACEUTICALS INC-A201700745

PATIENT
  Age: 18 Year
  Sex: Female
  Weight: 73 kg

DRUGS (1)
  1. SEBELIPASE ALFA [Suspect]
     Active Substance: SEBELIPASE ALFA
     Indication: LYSOSOMAL ACID LIPASE DEFICIENCY
     Dosage: 1 MG/KG, Q2W
     Route: 042
     Dates: start: 20161005

REACTIONS (1)
  - Blood alkaline phosphatase increased [Not Recovered/Not Resolved]

NARRATIVE: CASE EVENT DATE: 20161222
